FAERS Safety Report 5064934-X (Version None)
Quarter: 2006Q3

REPORT INFORMATION
  Report Type: 
  Country: None (occurrence: None)
  Receive Date: 20060728
  Receipt Date: 20060714
  Transmission Date: 20061208
  Serious: Yes (Hospitalization, Other)
  Sender: FDA-Public Use
  Company Number: US-AMGEN-US186718

PATIENT
  Sex: Female

DRUGS (8)
  1. NEUPOGEN [Suspect]
     Indication: NEUTROPENIA
     Dates: start: 20060315
  2. PEGASYS [Suspect]
     Dates: start: 20051127
  3. COPEGUS [Suspect]
     Route: 048
     Dates: start: 20051127
  4. LORAZEPAM [Concomitant]
  5. PAXIL [Concomitant]
  6. TRAZODONE HCL [Concomitant]
  7. DURICEF [Concomitant]
  8. NORTRIPTYLINE HCL [Concomitant]

REACTIONS (9)
  - DEHYDRATION [None]
  - DEPRESSION [None]
  - FATIGUE [None]
  - HELICOBACTER PYLORI IDENTIFICATION TEST POSITIVE [None]
  - INSOMNIA [None]
  - NAUSEA [None]
  - SUICIDAL IDEATION [None]
  - VISION BLURRED [None]
  - VOMITING [None]
